FAERS Safety Report 8474688-2 (Version None)
Quarter: 2012Q2

REPORT INFORMATION
  Report Type: 
  Country: None (occurrence: None)
  Receive Date: 20120628
  Receipt Date: 20120627
  Transmission Date: 20120825
  Serious: Yes (Other)
  Sender: FDA-Public Use
  Company Number: US-PFIZER INC-2010US-39550

PATIENT
  Age: 28 Year
  Sex: Female

DRUGS (9)
  1. VERAPAMIL HCL [Interacting]
     Dosage: 120 MG, 1X/DAY
     Route: 048
  2. DIGOXIN [Interacting]
     Dosage: 0.875 MG, 1X/DAY
     Route: 048
  3. DIGOXIN [Interacting]
     Dosage: 0.5 MG, 2X/DAY
     Route: 048
  4. VERAPAMIL HCL [Suspect]
     Indication: TACHYCARDIA FOETAL
     Dosage: 80 MG, 3X/DAY
     Route: 048
  5. DIGOXIN [Interacting]
     Dosage: 1.25 MG TOTAL FIRST 24 HRS
  6. DIGOXIN [Interacting]
     Dosage: 0.5 MG, 1 IN 24 HR
     Route: 065
  7. PROPRANOLOL [Concomitant]
  8. DIGOXIN [Interacting]
     Dosage: 0.75 TO 1.0 MG/24 HRS
     Route: 065
  9. DIGOXIN [Interacting]
     Dosage: 0.625 MG, 4X/DAY
     Route: 065

REACTIONS (3)
  - FOETAL DEATH [None]
  - DRUG INTERACTION [None]
  - MATERNAL EXPOSURE DURING PREGNANCY [None]
